FAERS Safety Report 6394737-5 (Version None)
Quarter: 2009Q4

REPORT INFORMATION
  Report Type: 
  Country: None (occurrence: None)
  Receive Date: 20091009
  Receipt Date: 20090910
  Transmission Date: 20100525
  Serious: No
  Sender: FDA-Public Use
  Company Number: US-BAYER-200930025NA

PATIENT
  Age: 27 Year
  Sex: Female
  Weight: 100 kg

DRUGS (2)
  1. MIRENA [Suspect]
     Indication: CONTRACEPTION
     Dosage: CONTINUOUS DELIVERY
     Route: 015
     Dates: start: 20090625, end: 20090825
  2. ORAL CONTRACEPTIVES NOS [Concomitant]

REACTIONS (5)
  - ALOPECIA [None]
  - GENITAL PAIN [None]
  - MEDICAL DEVICE COMPLICATION [None]
  - NAUSEA [None]
  - VAGINAL HAEMORRHAGE [None]
